FAERS Safety Report 5939286-0 (Version None)
Quarter: 2008Q4

REPORT INFORMATION
  Report Type: 
  Country: None (occurrence: None)
  Receive Date: 20081103
  Receipt Date: 20081023
  Transmission Date: 20090506
  Serious: Yes (Death, Other)
  Sender: FDA-Public Use
  Company Number: -BAXTER-2008BH010492

PATIENT
  Age: 73 Year
  Sex: Male
  Weight: 88 kg

DRUGS (5)
  1. REGLAN [Suspect]
     Indication: SMALL INTESTINAL OBSTRUCTION
     Route: 042
     Dates: start: 20080707, end: 20080708
  2. DILAUDID [Concomitant]
     Indication: PAIN
     Route: 042
  3. ROBAXIN [Concomitant]
     Indication: DRUG USE FOR UNKNOWN INDICATION
     Route: 042
  4. PROTONIX [Concomitant]
     Indication: DRUG USE FOR UNKNOWN INDICATION
     Route: 042
  5. COUMADIN [Concomitant]
     Indication: DRUG USE FOR UNKNOWN INDICATION
     Route: 065
     Dates: end: 20080701

REACTIONS (9)
  - ABDOMINAL PAIN [None]
  - BLOOD PRESSURE DECREASED [None]
  - BODY TEMPERATURE INCREASED [None]
  - CONDITION AGGRAVATED [None]
  - GASTRIC HAEMORRHAGE [None]
  - LIVEDO RETICULARIS [None]
  - OXYGEN SATURATION DECREASED [None]
  - SEPSIS [None]
  - SMALL INTESTINAL OBSTRUCTION [None]
